FAERS Safety Report 10048420 (Version 1)
Quarter: 2014Q1

REPORT INFORMATION
  Report Type: Spontaneous
  Country: US (occurrence: None)
  Receive Date: 20140306
  Receipt Date: 20140306
  Transmission Date: 20141002
  Serious: Yes (Disabling, Other)
  Sender: FDA-Public Use
  Company Number: 163-21880-12123390

PATIENT
  Age: 72 Year
  Sex: Female
  Weight: 70.3 kg

DRUGS (21)
  1. REVLIMID (LENALIDOMIDE) (10 MILLIGRAM, CAPSULES) [Suspect]
     Indication: PLASMA CELL MYELOMA
     Dosage: 21 IN 28 D
     Route: 048
     Dates: start: 20071121
  2. DEXAMETHASONE [Concomitant]
  3. AREDIA (PAMIDRONATE DISODIUM) [Concomitant]
  4. PRED FORTE (PREDNISOLONE ACETATE) [Concomitant]
  5. TYLENOL ARTHRITIS (PARACETAMOL) [Concomitant]
  6. METFORMIN [Concomitant]
  7. GLUCOSAMINE-CHONDROITIN (GLUCOSAMINE W/CHONDROITIN SULFATE) [Concomitant]
  8. INNOPRAN XL (PROPRANOLOL HYDROCHLORIDE) [Concomitant]
  9. PEPCID (FAMOTIDINE) [Concomitant]
  10. FOLIC ACID [Concomitant]
  11. LOVENOX (HEPARIN-FRACTION, SODIUM SALT) [Concomitant]
  12. COUMADIN (WARFARIN SODIUM) [Concomitant]
  13. PROPRANOLOL [Concomitant]
  14. TYLENOL EX-STR [Concomitant]
  15. MELPHALAN HCL [Concomitant]
  16. HUMALOG (INSULIN LISPRO) [Concomitant]
  17. FUROSEMIDE [Concomitant]
  18. SYNTHROID (LEVOTHYROXINE SODIUM) [Concomitant]
  19. LANTUS SOLOSTAR (INSULIN GLARGINE) [Concomitant]
  20. GABAPENTIN [Concomitant]
  21. DOXAZOSIN MESYLATE (DOXAZOSIN MESILATE) [Concomitant]

REACTIONS (9)
  - Thrombocytopenia [None]
  - Blood creatinine increased [None]
  - Deep vein thrombosis [None]
  - Diarrhoea [None]
  - Fatigue [None]
  - Rash [None]
  - Local swelling [None]
  - Pruritus [None]
  - Skin exfoliation [None]
